FAERS Safety Report 8150338-X (Version None)
Quarter: 2012Q1

REPORT INFORMATION
  Report Type: 
  Country: None (occurrence: None)
  Receive Date: 20120220
  Receipt Date: 20120218
  Transmission Date: 20120608
  Serious: Yes (Other)
  Sender: FDA-Public Use
  Company Number: US-PFIZER INC-2012043767

PATIENT
  Sex: Female
  Weight: 80.272 kg

DRUGS (5)
  1. CHANTIX [Suspect]
     Indication: SMOKING CESSATION THERAPY
     Dosage: 0.5 MG, 1X/DAY
     Route: 048
  2. MORPHINE [Concomitant]
     Indication: BACK DISORDER
     Dosage: UNK
  3. OXYCODONE [Concomitant]
     Dosage: UNK
  4. CHANTIX [Suspect]
     Dosage: 1 MG, 2X/DAY
     Route: 048
     Dates: end: 20120217
  5. FLUOXETINE [Concomitant]
     Dosage: UNK

REACTIONS (7)
  - ANXIETY [None]
  - AGITATION [None]
  - AGGRESSION [None]
  - TREMOR [None]
  - VITAMIN D DECREASED [None]
  - PERSONALITY DISORDER [None]
  - SPEECH DISORDER [None]
